FAERS Safety Report 16527691 (Version 1)
Quarter: 2019Q3

REPORT INFORMATION
  Report Type: Spontaneous
  Country: US (occurrence: US)
  Receive Date: 20190703
  Receipt Date: 20190703
  Transmission Date: 20191004
  Serious: No
  Sender: FDA-Public Use
  Company Number: US-TEVA-2019-US-1060459

PATIENT
  Sex: Male

DRUGS (7)
  1. NABUMETONE. [Concomitant]
     Active Substance: NABUMETONE
  2. GABAPENTIN. [Concomitant]
     Active Substance: GABAPENTIN
  3. TYLENOL [Concomitant]
     Active Substance: ACETAMINOPHEN
  4. MARINOL [Concomitant]
     Active Substance: DRONABINOL
  5. BUPRENORPHINE TEVA [Suspect]
     Active Substance: BUPRENORPHINE
     Route: 062
     Dates: start: 201901
  6. VALERIAN [Concomitant]
     Active Substance: VALERIAN
  7. NAPROXEN. [Concomitant]
     Active Substance: NAPROXEN

REACTIONS (5)
  - Product adhesion issue [Unknown]
  - Pain [Unknown]
  - Product substitution issue [Unknown]
  - Product quality issue [Unknown]
  - Drug ineffective [Unknown]
